FAERS Safety Report 6059285-0 (Version None)
Quarter: 2009Q1

REPORT INFORMATION
  Report Type: 
  Country: None (occurrence: None)
  Receive Date: 20090130
  Receipt Date: 20090120
  Transmission Date: 20090719
  Serious: Yes (Hospitalization)
  Sender: FDA-Public Use
  Company Number: IN-ROCHE-609169

PATIENT
  Sex: Male
  Weight: 61 kg

DRUGS (7)
  1. METHOXY POLYETHYLENE GLYCOL-EPOETIN BETA [Suspect]
     Dosage: DOSAGE FORM REPORTED AS PFS. NEXT DOSEAFTER 7 JANUARY 2009 TEMPORARILY ON HOLD
     Route: 042
     Dates: start: 20081110, end: 20090107
  2. AMLOPRES AT [Concomitant]
  3. MINIPRESS [Concomitant]
     Dosage: DRUG NAME REPORTED AS MINIPRES XL.
  4. ECOSPRIN [Concomitant]
  5. NEPHROCAPS [Concomitant]
  6. ATARAX [Concomitant]
  7. ALPHA D3 [Concomitant]

REACTIONS (2)
  - ACUTE PULMONARY OEDEMA [None]
  - HYPERTENSION [None]
